FAERS Safety Report 22164300 (Version 1)
Quarter: 2023Q2

REPORT INFORMATION
  Report Type: Spontaneous
  Country: FR (occurrence: FR)
  Receive Date: 20230403
  Receipt Date: 20230403
  Transmission Date: 20230721
  Serious: Yes (Hospitalization)
  Sender: FDA-Public Use
  Company Number: None

PATIENT
  Age: 74 Year
  Sex: Male
  Weight: 104 kg

DRUGS (15)
  1. TRAMADOL HYDROCHLORIDE [Suspect]
     Active Substance: TRAMADOL HYDROCHLORIDE
     Indication: Product used for unknown indication
     Dosage: 150 MILLIGRAM, 1/DAY
     Route: 048
     Dates: end: 20230201
  2. ALLOPURINOL [Suspect]
     Active Substance: ALLOPURINOL
     Indication: Gout
     Dosage: 300 MILLIGRAM, 1/DAY
     Route: 048
     Dates: end: 20230201
  3. ALPRAZOLAM [Suspect]
     Active Substance: ALPRAZOLAM
     Indication: Product used for unknown indication
     Dosage: 0.5 MILLIGRAM, 1/DAY
     Route: 048
     Dates: end: 20230201
  4. FLECAINIDE [Suspect]
     Active Substance: FLECAINIDE
     Indication: Product used for unknown indication
     Dosage: 150 MILLIGRAM, 1/DAY
     Route: 048
     Dates: end: 20230201
  5. FERROUS FUMARATE [Suspect]
     Active Substance: FERROUS FUMARATE
     Indication: Product used for unknown indication
     Dosage: 132 MILLIGRAM, 1/DAY
     Route: 048
     Dates: end: 20230201
  6. ACUPAN [Suspect]
     Active Substance: NEFOPAM HYDROCHLORIDE
     Indication: Product used for unknown indication
     Dosage: 80 MILLIGRAM, 1/DAY
     Route: 048
     Dates: end: 20230201
  7. AMIODARONE [Suspect]
     Active Substance: AMIODARONE
     Indication: Atrial fibrillation
     Dosage: 200 MILLIGRAM, 1/DAY
     Route: 048
     Dates: end: 20230201
  8. FENOFIBRATE [Suspect]
     Active Substance: FENOFIBRATE
     Indication: Product used for unknown indication
     Dosage: 200 MILLIGRAM, 1/DAY
     Route: 048
     Dates: end: 20230201
  9. NEBIVOLOL [Suspect]
     Active Substance: NEBIVOLOL
     Indication: Atrial fibrillation
     Dosage: 5 MILLIGRAM, 1/DAY
     Route: 048
     Dates: end: 20230201
  10. METFORMIN HYDROCHLORIDE [Suspect]
     Active Substance: METFORMIN HYDROCHLORIDE
     Indication: Type 2 diabetes mellitus
     Dosage: 2550 MILLIGRAM, 1/DAY
     Route: 048
     Dates: end: 20230201
  11. ARTISIAL [Concomitant]
     Active Substance: CALCIUM CHLORIDE\MAGNESIUM CHLORIDE\POTASSIUM CHLORIDE\POTASSIUM PHOSPHATE, DIBASIC\POTASSIUM PHOSPH
     Dosage: UNK
     Route: 065
  12. PANTOPRAZOLE [Concomitant]
     Active Substance: PANTOPRAZOLE
     Dosage: UNK
     Route: 065
  13. ACETAMINOPHEN [Concomitant]
     Active Substance: ACETAMINOPHEN
     Dosage: UNK
     Route: 065
  14. FUROSEMIDE [Concomitant]
     Active Substance: FUROSEMIDE
     Dosage: UNK
     Route: 065
  15. ELIQUIS [Concomitant]
     Active Substance: APIXABAN
     Dosage: 2.5 MILLIGRAM
     Route: 065

REACTIONS (2)
  - Lactic acidosis [Recovered/Resolved with Sequelae]
  - Atrioventricular block [Recovered/Resolved with Sequelae]

NARRATIVE: CASE EVENT DATE: 20230201
